FAERS Safety Report 19884590 (Version 2)
Quarter: 2021Q4

REPORT INFORMATION
  Report Type: Spontaneous
  Country: US (occurrence: US)
  Receive Date: 20210927
  Receipt Date: 20211002
  Transmission Date: 20220303
  Serious: No
  Sender: FDA-Public Use
  Company Number: US-SA-SAC20210923000497

PATIENT
  Sex: Female

DRUGS (11)
  1. DUPIXENT [Suspect]
     Active Substance: DUPILUMAB
     Indication: Ill-defined disorder
     Dosage: 300 MG, QOW
     Route: 058
  2. FLONASE ALLERGY RELIEF [Concomitant]
     Active Substance: FLUTICASONE PROPIONATE
     Dosage: UNK
  3. VITAMIN D3 [Concomitant]
     Active Substance: CHOLECALCIFEROL
     Dosage: UNK
  4. BUSPIRONE HCL [Concomitant]
     Active Substance: BUSPIRONE HYDROCHLORIDE
     Dosage: 15 MG
  5. DICLOFENAC [Concomitant]
     Active Substance: DICLOFENAC
     Dosage: 75 MG
  6. FLUTICASONE [Concomitant]
     Active Substance: FLUTICASONE
  7. LISINOPRIL [Concomitant]
     Active Substance: LISINOPRIL
     Dosage: 5 MG
  8. MONTELUKAST [Concomitant]
     Active Substance: MONTELUKAST SODIUM
     Dosage: 10 MG
  9. SPIRIVA [Concomitant]
     Active Substance: TIOTROPIUM BROMIDE MONOHYDRATE
     Dosage: 18 UG
  10. SYMBICORT [Concomitant]
     Active Substance: BUDESONIDE\FORMOTEROL FUMARATE DIHYDRATE
     Dosage: UNK
  11. METOPROLOL [Concomitant]
     Active Substance: METOPROLOL
     Dosage: 50 MG

REACTIONS (3)
  - Injection site pain [Unknown]
  - Injection site bruising [Unknown]
  - Product use in unapproved indication [Unknown]
